FAERS Safety Report 24530148 (Version 4)
Quarter: 2024Q4

REPORT INFORMATION
  Report Type: Report from Study
  Country: US (occurrence: US)
  Receive Date: 20241021
  Receipt Date: 20241115
  Transmission Date: 20250114
  Serious: Yes (Hospitalization, Other)
  Sender: MALLINCKRODT
  Company Number: US-MALLINCKRODT-MNK202404647

PATIENT
  Age: 74 Year
  Sex: Male
  Weight: 200 kg

DRUGS (4)
  1. CORTICOTROPIN [Suspect]
     Active Substance: CORTICOTROPIN
     Indication: Pulmonary sarcoidosis
     Dosage: UNKNOWN
  2. CORTICOTROPIN [Suspect]
     Active Substance: CORTICOTROPIN
     Dosage: 80 UNITS
     Route: 058
  3. AMBIEN CR [Concomitant]
     Active Substance: ZOLPIDEM TARTRATE
     Dosage: UNKNOWN
  4. AMOXICILLIN [Concomitant]
     Active Substance: AMOXICILLIN
     Dosage: UNKNOWN

REACTIONS (6)
  - Diabetes mellitus [Unknown]
  - Pulmonary artery aneurysm [Not Recovered/Not Resolved]
  - Pneumonia staphylococcal [Unknown]
  - Respiratory tract infection bacterial [Recovered/Resolved]
  - Injection site pain [Unknown]
  - Mood altered [Unknown]

NARRATIVE: CASE EVENT DATE: 20240601
